FAERS Safety Report 9805550 (Version 1)
Quarter: 2014Q1

REPORT INFORMATION
  Report Type: Spontaneous
  Country: US (occurrence: US)
  Receive Date: 20140109
  Receipt Date: 20140109
  Transmission Date: 20141002
  Serious: Yes (Hospitalization)
  Sender: FDA-Public Use
  Company Number: US-BAYER-2014-002266

PATIENT
  Age: 36 Year
  Sex: Female
  Weight: 95.24 kg

DRUGS (7)
  1. YAZ [Suspect]
  2. GIANVI [Suspect]
  3. TORADOL [Concomitant]
     Indication: PAIN MANAGEMENT
  4. ASPIRIN [Concomitant]
  5. AZITHROMYCIN [Concomitant]
  6. IBUPROFEN [Concomitant]
  7. HYDROCODONE W/ACETAMINOPHEN [Concomitant]

REACTIONS (3)
  - Pulmonary embolism [None]
  - Pelvic venous thrombosis [Recovered/Resolved]
  - Deep vein thrombosis [Recovered/Resolved]
